FAERS Safety Report 7681335-6 (Version None)
Quarter: 2011Q3

REPORT INFORMATION
  Report Type: 
  Country: None (occurrence: None)
  Receive Date: 20110812
  Receipt Date: 20110808
  Transmission Date: 20111222
  Serious: Yes (Hospitalization)
  Sender: FDA-Public Use
  Company Number: NZ-CEPHALON-2011004140

PATIENT
  Sex: Female
  Weight: 81 kg

DRUGS (11)
  1. ALLOPURINOL [Concomitant]
     Dates: start: 20110525
  2. SYNTHROID [Concomitant]
     Dates: start: 19960101
  3. ONDANSETRON [Concomitant]
     Dates: start: 20110525
  4. MELOXICAM [Concomitant]
     Dates: start: 19910101
  5. APREPITANT [Concomitant]
     Dates: start: 20110727
  6. BENDAMUSTINE HCL [Suspect]
     Route: 042
     Dates: start: 20110526
  7. SYMBICORT [Concomitant]
     Dates: start: 20060101
  8. METOCLOPRAMIDE [Concomitant]
     Dates: start: 20110526
  9. CLARITIN [Concomitant]
     Dates: start: 20110525
  10. RITUXIMAB [Suspect]
     Dates: start: 20110525
  11. ACETAMINOPHEN [Concomitant]
     Dates: start: 20110525

REACTIONS (1)
  - DIVERTICULITIS [None]
